FAERS Safety Report 19053090 (Version 1)
Quarter: 2021Q1

REPORT INFORMATION
  Report Type: Report from Study
  Country: None (occurrence: US)
  Receive Date: 20210325
  Receipt Date: 20210325
  Transmission Date: 20210420
  Serious: Yes (Other)
  Sender: FDA-Public Use
  Company Number: US-ABBVIE-21K-163-3822347-00

PATIENT
  Sex: Female

DRUGS (3)
  1. FOLIC ACID. [Concomitant]
     Active Substance: FOLIC ACID
     Indication: PRODUCT USED FOR UNKNOWN INDICATION
     Dosage: PILLS
     Dates: start: 2021
  2. METHOTREXATE. [Concomitant]
     Active Substance: METHOTREXATE
     Indication: PRODUCT USED FOR UNKNOWN INDICATION
     Dosage: PILLS
     Dates: start: 2021
  3. HUMIRA [Suspect]
     Active Substance: ADALIMUMAB
     Indication: RHEUMATOID ARTHRITIS
     Route: 058

REACTIONS (11)
  - Weight decreased [Unknown]
  - Pollakiuria [Unknown]
  - Weight increased [Unknown]
  - Feeling abnormal [Recovering/Resolving]
  - Abdominal distension [Recovered/Resolved]
  - Unevaluable event [Not Recovered/Not Resolved]
  - Gastrointestinal disorder [Unknown]
  - Intestinal operation [Unknown]
  - Lymphoedema [Recovering/Resolving]
  - Neuropathy peripheral [Recovering/Resolving]
  - Gastrointestinal pain [Recovering/Resolving]
